FAERS Safety Report 11347761 (Version 1)
Quarter: 2015Q3

REPORT INFORMATION
  Report Type: Spontaneous
  Country: US (occurrence: US)
  Receive Date: 20150803
  Receipt Date: 20150803
  Transmission Date: 20151125
  Serious: No
  Sender: FDA-Public Use
  Company Number: US-ELI_LILLY_AND_COMPANY-US201110000306

PATIENT
  Age: 34 Year
  Sex: Male

DRUGS (1)
  1. ZYPREXA [Suspect]
     Active Substance: OLANZAPINE
     Dosage: 20 MG, EACH MORNING
     Dates: start: 20110803, end: 20110920

REACTIONS (8)
  - Weight increased [Unknown]
  - Communication disorder [Unknown]
  - Pyrexia [Unknown]
  - Anger [Unknown]
  - Tremor [Unknown]
  - Hunger [Unknown]
  - Somnolence [Unknown]
  - Chest pain [Unknown]

NARRATIVE: CASE EVENT DATE: 2011
